FAERS Safety Report 25254399 (Version 1)
Quarter: 2025Q2

REPORT INFORMATION
  Report Type: Spontaneous
  Country: CO (occurrence: CO)
  Receive Date: 20250430
  Receipt Date: 20250430
  Transmission Date: 20250716
  Serious: Yes (Hospitalization)
  Sender: ALEXION PHARMACEUTICALS
  Company Number: CO-AstraZeneca-CH-00855862A

PATIENT
  Age: 75 Year
  Weight: 143 kg

DRUGS (1)
  1. IMFINZI [Suspect]
     Active Substance: DURVALUMAB
     Indication: Metastases to lung
     Dosage: 50 MILLIGRAM, QMONTH

REACTIONS (3)
  - Loss of consciousness [Recovering/Resolving]
  - Platelet count decreased [Recovering/Resolving]
  - Blood magnesium decreased [Recovering/Resolving]
